FAERS Safety Report 20770526 (Version 1)
Quarter: 2022Q2

REPORT INFORMATION
  Report Type: Spontaneous
  Country: US (occurrence: None)
  Receive Date: 20220429
  Receipt Date: 20220429
  Transmission Date: 20220721
  Serious: Yes (Death, Hospitalization)
  Sender: FDA-Public Use
  Company Number: None

PATIENT
  Age: 71 Year
  Sex: Male
  Weight: 129.7 kg

DRUGS (1)
  1. SOTROVIMAB [Suspect]
     Active Substance: SOTROVIMAB
     Indication: Coronavirus infection
     Dosage: OTHER FREQUENCY : ONCE;?
     Route: 041
     Dates: start: 20211119, end: 20211119

REACTIONS (5)
  - Lactic acidosis [None]
  - Renal injury [None]
  - Metabolic acidosis [None]
  - Pulse absent [None]
  - Leukocytosis [None]

NARRATIVE: CASE EVENT DATE: 20220111
